FAERS Safety Report 6667311-0 (Version None)
Quarter: 2010Q2

REPORT INFORMATION
  Report Type: 
  Country: None (occurrence: None)
  Receive Date: 20100401
  Receipt Date: 20100401
  Transmission Date: 20101027
  Serious: No
  Sender: FDA-Public Use
  Company Number: None

PATIENT
  Age: 74 Year
  Sex: Female
  Weight: 72.7 kg

DRUGS (1)
  1. AZASITE [Suspect]
     Indication: ROSACEA
     Dosage: 1 DROP EA EYE 2 X DAY FOR 2 DAYS THEN 1 DROP DAY FOR 14 DAYS
     Dates: start: 20100302, end: 20100312

REACTIONS (4)
  - DRUG INEFFECTIVE [None]
  - EYE BURNS [None]
  - LIQUID PRODUCT PHYSICAL ISSUE [None]
  - OVERDOSE [None]
